FAERS Safety Report 6773384-7 (Version None)
Quarter: 2010Q2

REPORT INFORMATION
  Report Type: 
  Country: None (occurrence: None)
  Receive Date: 20100611
  Receipt Date: 20100601
  Transmission Date: 20101027
  Serious: Yes (Hospitalization)
  Sender: FDA-Public Use
  Company Number: DSU-2010-02451

PATIENT
  Age: 63 Year
  Sex: Male
  Weight: 86.1834 kg

DRUGS (7)
  1. WELCHOL [Suspect]
     Dosage: 3750 MG (3750 MG, QD), PER ORAL; 2500 MG (2500 MG, QD), PER ORAL
     Route: 048
     Dates: end: 20100531
  2. LEXAPRO (ESCITALOPRAM OXALATE) (ESCITALOPRAM OXALATE) [Concomitant]
  3. ALPRAZOLAM [Concomitant]
  4. LEVOXYL (LEVOTHYROXINE SODIUM) (LEVOTHYROXINE SODIUM) [Concomitant]
  5. CRESTOR (ROSUVASTATIN) (ROSUVASTATIN) [Concomitant]
  6. ASPIRIN (ACETYLSALICYLIC ACID) (81 MILLIGRAM) (ACETYLSALICYLIC ACID) [Concomitant]
  7. FISH OIL (FISH OIL) (FISH OIL) [Concomitant]

REACTIONS (3)
  - ASTHENIA [None]
  - CONSTIPATION [None]
  - HYPERHIDROSIS [None]
